FAERS Safety Report 25129104 (Version 1)
Quarter: 2025Q1

REPORT INFORMATION
  Report Type: Spontaneous
  Country: US (occurrence: US)
  Receive Date: 20250327
  Receipt Date: 20250327
  Transmission Date: 20250409
  Serious: No
  Sender: ANI
  Company Number: US-ANIPHARMA-2024-US-061648

PATIENT
  Sex: Female

DRUGS (2)
  1. CORTICOTROPIN [Suspect]
     Active Substance: CORTICOTROPIN
     Indication: Dacryoadenitis acquired
  2. MULTIPLE VITAMIN/IRON [Concomitant]

REACTIONS (2)
  - Therapeutic product effect decreased [Unknown]
  - Injection site irritation [Unknown]
